FAERS Safety Report 23557128 (Version 1)
Quarter: 2024Q1

REPORT INFORMATION
  Report Type: Spontaneous
  Country: US (occurrence: US)
  Receive Date: 20240223
  Receipt Date: 20240223
  Transmission Date: 20240409
  Serious: No
  Sender: FDA-Public Use
  Company Number: US-BIOCON BIOLOGICS LIMITED-2023M1105431

PATIENT
  Sex: Male
  Weight: 108.86 kg

DRUGS (2)
  1. SEMGLEE (INSULIN GLARGINE-YFGN) [Suspect]
     Active Substance: INSULIN GLARGINE-YFGN
     Indication: Type 1 diabetes mellitus
     Dosage: 80 INTERNATIONAL UNIT, QD (45UNITS/ML AT MORNING AND 35UNITS/ML AFTERNOON)
     Route: 058
     Dates: start: 202302
  2. DEVICE [Suspect]
     Active Substance: DEVICE
     Indication: Type 1 diabetes mellitus

REACTIONS (2)
  - Product packaging quantity issue [Unknown]
  - Product quality issue [Unknown]
